FAERS Safety Report 16051345 (Version 4)
Quarter: 2019Q3

REPORT INFORMATION
  Report Type: Spontaneous
  Country: PL (occurrence: PL)
  Receive Date: 20190308
  Receipt Date: 20190712
  Transmission Date: 20191004
  Serious: Yes (Hospitalization, Other)
  Sender: FDA-Public Use
  Company Number: PL-AUROBINDO-AUR-APL-2019-011514

PATIENT

DRUGS (41)
  1. ALPRAZOLAM. [Suspect]
     Active Substance: ALPRAZOLAM
     Indication: ANXIETY
     Dosage: UNK UNK, AS NECESSARY
     Route: 065
  2. OLANZAPINE. [Suspect]
     Active Substance: OLANZAPINE
     Indication: ANXIETY DISORDER
     Dosage: AS NECESSARY
     Route: 065
  3. ZOLPIDEM [Suspect]
     Active Substance: ZOLPIDEM TARTRATE
     Indication: SLEEP DISORDER
  4. ZOLPIDEM [Suspect]
     Active Substance: ZOLPIDEM TARTRATE
     Indication: ANXIETY
  5. CLONAZEPAM. [Suspect]
     Active Substance: CLONAZEPAM
     Indication: FEAR
     Dosage: UNK, AS NECESSARY
     Route: 065
  6. CLONAZEPAM. [Suspect]
     Active Substance: CLONAZEPAM
     Indication: ANXIETY DISORDER
  7. CLOBETASOL [Suspect]
     Active Substance: CLOBETASOL
     Indication: SOMATIC SYMPTOM DISORDER
  8. VENLAFAXINE [Suspect]
     Active Substance: VENLAFAXINE HYDROCHLORIDE
     Indication: BIPOLAR DISORDER
  9. VENLAFAXINE [Suspect]
     Active Substance: VENLAFAXINE HYDROCHLORIDE
     Indication: AFFECTIVE DISORDER
  10. LAMOTRIGINE. [Suspect]
     Active Substance: LAMOTRIGINE
     Indication: AFFECTIVE DISORDER
  11. FLUTICASONE. [Suspect]
     Active Substance: FLUTICASONE
     Indication: SOMATIC SYMPTOM DISORDER
  12. PAROXETINE. [Suspect]
     Active Substance: PAROXETINE
     Indication: ANXIETY
  13. QUETIAPINE. [Suspect]
     Active Substance: QUETIAPINE
     Indication: ANXIETY
  14. ESOMEPRAZOLE MAGNESIUM DIHYDRATE [Suspect]
     Active Substance: ESOMEPRAZOLE MAGNESIUM
     Indication: SOMATIC DYSFUNCTION
     Dosage: UNK
     Route: 065
  15. MIDAZOLAM [Suspect]
     Active Substance: MIDAZOLAM HYDROCHLORIDE
     Indication: SLEEP DISORDER
     Dosage: UNK
     Route: 065
  16. OLANZAPINE. [Suspect]
     Active Substance: OLANZAPINE
     Indication: FEAR
  17. ESOMEPRAZOLE MAGNESIUM DIHYDRATE [Suspect]
     Active Substance: ESOMEPRAZOLE MAGNESIUM
     Indication: SOMATIC SYMPTOM DISORDER
  18. CLOBETASOL [Suspect]
     Active Substance: CLOBETASOL
     Indication: SOMATIC DYSFUNCTION
     Dosage: UNK
     Route: 061
  19. BUPROPION. [Concomitant]
     Active Substance: BUPROPION
     Indication: PRODUCT USED FOR UNKNOWN INDICATION
     Dosage: UNK, UP TO 300MG/DAY
     Route: 065
  20. MONTELUKAST [Suspect]
     Active Substance: MONTELUKAST SODIUM
     Indication: SOMATIC SYMPTOM DISORDER
     Dosage: UNK
     Route: 065
  21. NEBIVOLOL. [Suspect]
     Active Substance: NEBIVOLOL
     Indication: SOMATIC SYMPTOM DISORDER
     Dosage: UNK
     Route: 065
  22. ALPRAZOLAM. [Suspect]
     Active Substance: ALPRAZOLAM
     Indication: ANXIETY
  23. VALSARTAN. [Suspect]
     Active Substance: VALSARTAN
     Indication: SOMATIC SYMPTOM DISORDER
     Dosage: UNK
     Route: 065
  24. MIDAZOLAM [Suspect]
     Active Substance: MIDAZOLAM HYDROCHLORIDE
     Indication: SLEEP DISORDER
  25. SALMETEROL [Suspect]
     Active Substance: SALMETEROL
     Indication: SOMATIC DYSFUNCTION
     Dosage: UNK
     Route: 065
  26. HYDROCHLOROTHIAZIDE. [Suspect]
     Active Substance: HYDROCHLOROTHIAZIDE
     Indication: SOMATIC DYSFUNCTION
     Dosage: UNK
     Route: 005
  27. PAROXETINE. [Suspect]
     Active Substance: PAROXETINE
     Indication: BIPOLAR DISORDER
     Dosage: 40 MILLIGRAM, DAILY (40 MG, QD) (UP TO 40 MG/DAY)
     Route: 065
  28. ALPRAZOLAM. [Suspect]
     Active Substance: ALPRAZOLAM
     Indication: ANXIETY DISORDER
  29. LAMOTRIGINE. [Suspect]
     Active Substance: LAMOTRIGINE
     Indication: ANXIETY
  30. QUETIAPINE. [Suspect]
     Active Substance: QUETIAPINE
     Indication: BIPOLAR DISORDER
     Dosage: 200 MILLIGRAM, DAILY, UP TO 200MG/DAY
     Route: 065
  31. FLUTICASONE. [Suspect]
     Active Substance: FLUTICASONE
     Indication: SOMATIC DYSFUNCTION
     Dosage: UNK
     Route: 065
  32. CLONAZEPAM. [Suspect]
     Active Substance: CLONAZEPAM
     Indication: ANXIETY
  33. SALMETEROL [Suspect]
     Active Substance: SALMETEROL
     Indication: SOMATIC SYMPTOM DISORDER
  34. HYDROCHLOROTHIAZIDE. [Suspect]
     Active Substance: HYDROCHLOROTHIAZIDE
     Indication: SOMATIC SYMPTOM DISORDER
  35. VENLAFAXINE [Suspect]
     Active Substance: VENLAFAXINE HYDROCHLORIDE
     Indication: ANXIETY
     Dosage: 300 MILLIGRAM, DAILY (300 MG, QD)
     Route: 065
  36. LAMOTRIGINE. [Suspect]
     Active Substance: LAMOTRIGINE
     Indication: BIPOLAR DISORDER
     Dosage: 200 MILLIGRAM, DAILY, GRADUALLY INCREASED DOSES UP TO 200 MG/DAY
     Route: 065
  37. QUETIAPINE. [Suspect]
     Active Substance: QUETIAPINE
     Indication: AFFECTIVE DISORDER
  38. OLANZAPINE. [Suspect]
     Active Substance: OLANZAPINE
     Indication: ANXIETY
  39. ZOLPIDEM [Suspect]
     Active Substance: ZOLPIDEM TARTRATE
     Indication: SLEEP DISORDER
     Dosage: SOPORIFICALLY
     Route: 065
  40. MIDAZOLAM [Suspect]
     Active Substance: MIDAZOLAM HYDROCHLORIDE
     Indication: ANXIETY
  41. ESOMEPRAZOLE SODIUM. [Suspect]
     Active Substance: ESOMEPRAZOLE SODIUM
     Indication: SOMATIC SYMPTOM DISORDER
     Dosage: UNK
     Route: 065

REACTIONS (4)
  - Off label use [Unknown]
  - Drug-induced liver injury [Recovered/Resolved]
  - Product use in unapproved indication [Unknown]
  - Therapeutic product effect incomplete [Unknown]
